FAERS Safety Report 21961399 (Version 2)
Quarter: 2023Q1

REPORT INFORMATION
  Report Type: Spontaneous
  Country: JP (occurrence: None)
  Receive Date: 20230207
  Receipt Date: 20230221
  Transmission Date: 20230418
  Serious: Yes (Death)
  Sender: FDA-Public Use
  Company Number: 2023A030639

PATIENT
  Age: 96 Year
  Sex: Male

DRUGS (2)
  1. ONDEXXYA [Suspect]
     Active Substance: ANDEXANET ALFA
     Indication: Haemorrhage
     Dosage: DOSE UNKNOWN880.0MG UNKNOWN
     Route: 042
     Dates: start: 20230117
  2. ELIQUIS [Concomitant]
     Active Substance: APIXABAN
     Dates: start: 2018

REACTIONS (3)
  - Epilepsy [Fatal]
  - Asphyxia [Fatal]
  - Respiratory arrest [Fatal]

NARRATIVE: CASE EVENT DATE: 20230121
